FAERS Safety Report 7666071-4 (Version None)
Quarter: 2011Q3

REPORT INFORMATION
  Report Type: 
  Country: None (occurrence: None)
  Receive Date: 20110806
  Receipt Date: 20110531
  Transmission Date: 20111222
  Serious: No
  Sender: FDA-Public Use
  Company Number: US-ABBOTT-11P-163-0728843-00

PATIENT
  Sex: Male
  Weight: 106.69 kg

DRUGS (6)
  1. BENADRYL [Concomitant]
     Indication: INSOMNIA
  2. NIASPAN [Suspect]
     Indication: BLOOD CHOLESTEROL INCREASED
     Dates: start: 20110501
  3. SIMCOR [Concomitant]
     Indication: BLOOD CHOLESTEROL INCREASED
     Dosage: 1000/20 MG DAILY
     Dates: start: 20110301
  4. MOTRIN [Concomitant]
     Indication: BURSITIS
  5. MOTRIN [Concomitant]
     Indication: TENDONITIS
  6. ZYRTEC [Concomitant]
     Indication: HYPERSENSITIVITY

REACTIONS (1)
  - ASTHENIA [None]
